FAERS Safety Report 9806159 (Version 2)
Quarter: 2014Q1

REPORT INFORMATION
  Report Type: Spontaneous
  Country: US (occurrence: US)
  Receive Date: 20140109
  Receipt Date: 20140128
  Transmission Date: 20141002
  Serious: Yes (Death, Hospitalization, Other)
  Sender: FDA-Public Use
  Company Number: US-PFIZER INC-2014004198

PATIENT
  Age: 52 Year
  Sex: Male

DRUGS (1)
  1. INLYTA [Suspect]
     Indication: METASTATIC RENAL CELL CARCINOMA
     Dosage: 4 MG, 2X/DAY
     Route: 048
     Dates: start: 20131119

REACTIONS (16)
  - Pneumonia staphylococcal [Fatal]
  - Disease progression [Fatal]
  - Metastatic renal cell carcinoma [Fatal]
  - Septic shock [Unknown]
  - Respiratory failure [Unknown]
  - Pneumothorax [Unknown]
  - Renal failure acute [Unknown]
  - Haematemesis [Unknown]
  - Oesophageal candidiasis [Unknown]
  - Ileus [Unknown]
  - Delirium [Unknown]
  - Electrocardiogram QT prolonged [Unknown]
  - Thrombophlebitis [Unknown]
  - Bronchopleural fistula [Unknown]
  - Hypernatraemia [Recovering/Resolving]
  - Dysphagia [Unknown]
